FAERS Safety Report 7183380-6 (Version None)
Quarter: 2010Q4

REPORT INFORMATION
  Report Type: 
  Country: None (occurrence: None)
  Receive Date: 20101220
  Receipt Date: 20101220
  Transmission Date: 20110411
  Serious: Yes (Hospitalization)
  Sender: FDA-Public Use
  Company Number: None

PATIENT
  Age: 79 Year
  Sex: Female
  Weight: 53 kg

DRUGS (9)
  1. ASPIRIN [Suspect]
     Indication: DEEP VEIN THROMBOSIS
     Dosage: 81MG DAILY PO
     Route: 048
  2. AMLODIPINE [Concomitant]
  3. BENICAR [Concomitant]
  4. CARDURA [Concomitant]
  5. DEMADEX [Concomitant]
  6. TOPROL-XL [Concomitant]
  7. SYNTHROID [Concomitant]
  8. CENTRUM [Concomitant]
  9. CALTRATE [Concomitant]

REACTIONS (4)
  - ASTHENIA [None]
  - GASTRITIS [None]
  - HAEMOGLOBIN DECREASED [None]
  - HYPONATRAEMIA [None]
